FAERS Safety Report 6330638-6 (Version None)
Quarter: 2009Q3

REPORT INFORMATION
  Report Type: 
  Country: None (occurrence: None)
  Receive Date: 20090827
  Receipt Date: 20090619
  Transmission Date: 20100115
  Serious: No
  Sender: FDA-Public Use
  Company Number: US-BAYER-200924503NA

PATIENT
  Age: 55 Year
  Sex: Female

DRUGS (1)
  1. CLIMARA PRO [Suspect]
     Indication: NIGHT SWEATS
     Dosage: 0.045 TO 0.015 MG PATCHES
     Route: 062
     Dates: end: 20090614

REACTIONS (2)
  - NO ADVERSE EVENT [None]
  - POSTMENOPAUSAL HAEMORRHAGE [None]
